FAERS Safety Report 5062320-X (Version None)
Quarter: 2006Q3

REPORT INFORMATION
  Report Type: 
  Country: None (occurrence: None)
  Receive Date: 20060721
  Receipt Date: 20060710
  Transmission Date: 20061208
  Serious: Yes (Hospitalization)
  Sender: FDA-Public Use
  Company Number: 2006086936

PATIENT
  Age: 43 Year
  Sex: Female

DRUGS (6)
  1. NEURONTIN [Suspect]
     Indication: CONVULSION
     Dosage: 2400 MG (800 MG, 3 IN 1 D), ORAL
     Route: 048
     Dates: start: 20051115, end: 20060603
  2. VINCRISTINE [Suspect]
     Indication: GLIOMA
     Dates: start: 20051115, end: 20060303
  3. NATULAN (PROCARBAZINE HYDROCHLORIDE) [Suspect]
     Indication: GLIOMA
     Dates: start: 20051115, end: 20060303
  4. LOMUSTINE (LOMUSTINE) [Suspect]
     Indication: GLIOMA
     Dates: start: 20051115, end: 20060303
  5. LEVETIRACETAM [Concomitant]
  6. ALL OTHER THERAPEUTIC PRODUCTS (ALL OTHER THERAPEUTIC PRODUCTS (ALL OT [Concomitant]

REACTIONS (5)
  - CYTOLYTIC HEPATITIS [None]
  - GENERAL PHYSICAL HEALTH DETERIORATION [None]
  - HAEMODIALYSIS [None]
  - HEPATITIS CHOLESTATIC [None]
  - HEPATITIS TOXIC [None]
